FAERS Safety Report 13969306 (Version 1)
Quarter: 2017Q3

REPORT INFORMATION
  Report Type: Report from Study
  Country: AR (occurrence: AR)
  Receive Date: 20170914
  Receipt Date: 20170914
  Transmission Date: 20171128
  Serious: Yes (Hospitalization, Other)
  Sender: FDA-Public Use
  Company Number: AR-VIIV HEALTHCARE LIMITED-AR2017GSK106292

PATIENT
  Age: 61 Year
  Sex: Male
  Weight: 56 kg

DRUGS (4)
  1. DOLUTEGRAVIR [Suspect]
     Active Substance: DOLUTEGRAVIR
     Indication: HIV INFECTION
     Dosage: UNK
     Route: 048
     Dates: start: 20160513
  2. BLINDED FOSTEMSAVIR [Suspect]
     Active Substance: FOSTEMSAVIR TROMETHAMINE
     Indication: HIV INFECTION
     Dosage: 1200 MG, QD
     Route: 048
     Dates: start: 20160505
  3. DARUNAVIR + RITONAVIR [Concomitant]
     Active Substance: DARUNAVIR\RITONAVIR
     Dosage: 600 MG/100 MG BID
     Route: 048
     Dates: start: 20160513
  4. BLINDED PLACEBO [Suspect]
     Active Substance: INVESTIGATIONAL PRODUCT
     Indication: HIV INFECTION
     Dosage: 1200 MG, QD
     Route: 048
     Dates: start: 20160505

REACTIONS (6)
  - Angina pectoris [None]
  - Ventricular hypokinesia [None]
  - Blood chloride increased [None]
  - Coronary artery disease [Not Recovered/Not Resolved]
  - Myocardial ischaemia [None]
  - Ventricular extrasystoles [None]

NARRATIVE: CASE EVENT DATE: 20170605
